FAERS Safety Report 7896967-X (Version None)
Quarter: 2011Q4

REPORT INFORMATION
  Report Type: 
  Country: None (occurrence: None)
  Receive Date: 20111107
  Receipt Date: 20111101
  Transmission Date: 20120403
  Serious: No
  Sender: FDA-Public Use
  Company Number: US-PFIZER INC-2011223827

PATIENT
  Sex: Female
  Weight: 110 kg

DRUGS (4)
  1. CAMPTOSAR [Suspect]
     Indication: COLON CANCER METASTATIC
     Dosage: 360 MG ONCE EVERY 2 WEEKS
     Route: 042
     Dates: start: 20110823
  2. CAMPTOSAR [Suspect]
     Dosage: UNK
     Dates: start: 20111004
  3. AVASTIN [Suspect]
     Indication: COLON CANCER
     Dosage: 538 MG ONCE EVERY 2 WEEKS
     Route: 042
     Dates: start: 20110823
  4. FLUOROURACIL [Concomitant]
     Dosage: 800 MG, ONCE EVERY 2 WEEKS
     Route: 042

REACTIONS (5)
  - NAUSEA [None]
  - VOMITING [None]
  - MALAISE [None]
  - FLATULENCE [None]
  - INFECTION [None]
